FAERS Safety Report 9540377 (Version 1)
Quarter: 2013Q3

REPORT INFORMATION
  Report Type: Spontaneous
  Country: JP (occurrence: JP)
  Receive Date: 20130920
  Receipt Date: 20130920
  Transmission Date: 20140515
  Serious: Yes (Other)
  Sender: FDA-Public Use
  Company Number: JP-ASTRAZENECA-2013SE69358

PATIENT
  Age: 60 Year
  Sex: Female

DRUGS (9)
  1. ANAPEINE [Suspect]
     Indication: EPIDURAL ANAESTHESIA
     Dosage: 4 ML/H
     Route: 008
  2. ANAPEINE [Suspect]
     Indication: EPIDURAL ANAESTHESIA
     Dosage: 4 ML/H
     Route: 008
  3. ANAPEINE [Suspect]
     Indication: EPIDURAL ANAESTHESIA
     Dosage: AT A RATE OF 2 ML/H FOR CONTINOUS ADMINISTRATION AND OF 2 ML FOR  BOLUS
     Route: 008
  4. ANAPEINE [Suspect]
     Indication: EPIDURAL ANAESTHESIA
     Dosage: AT A RATE OF 2 ML/H FOR CONTINOUS ADMINISTRATION AND OF 2 ML FOR  BOLUS
     Route: 008
  5. ANAPEINE [Suspect]
     Indication: EPIDURAL ANAESTHESIA
     Dosage: AT A RATE OF 1 ML/H
     Route: 008
  6. ANAPEINE [Suspect]
     Indication: EPIDURAL ANAESTHESIA
     Dosage: AT A RATE OF 1 ML/H
     Route: 008
  7. FENTANYL [Concomitant]
     Indication: EPIDURAL ANAESTHESIA
     Dosage: 2 MCG/ML AT A RATE OF 2 ML/H FOR CONTINOUS ADMINISTRATION AND OF 2 ML FOR  BOLUS
     Route: 008
  8. PROPOFOL [Concomitant]
     Indication: GENERAL ANAESTHESIA
  9. REMIFENTANIL [Concomitant]
     Indication: GENERAL ANAESTHESIA

REACTIONS (3)
  - Monoparesis [Recovered/Resolved]
  - Horner^s syndrome [Recovered/Resolved]
  - Hypoaesthesia [Recovered/Resolved]
